FAERS Safety Report 22323114 (Version 1)
Quarter: 2023Q2

REPORT INFORMATION
  Report Type: Spontaneous
  Country: US (occurrence: None)
  Receive Date: 20230512
  Receipt Date: 20230512
  Transmission Date: 20230722
  Serious: Yes (Other)
  Sender: FDA-Public Use
  Company Number: None

PATIENT
  Age: 25 Year
  Sex: Female
  Weight: 81 kg

DRUGS (1)
  1. METRONIDAZOLE [Suspect]
     Active Substance: METRONIDAZOLE
     Dates: start: 20230426, end: 20230503

REACTIONS (5)
  - Anxiety [None]
  - Palpitations [None]
  - Brain fog [None]
  - Fatigue [None]
  - Somnolence [None]

NARRATIVE: CASE EVENT DATE: 20230503
